FAERS Safety Report 8133043 (Version 4)
Quarter: 2013Q3

REPORT INFORMATION
  Report Type: Spontaneous
  Country: US (occurrence: US)
  Receive Date: 20110913
  Receipt Date: 20130812
  Transmission Date: 20140515
  Serious: Yes (Hospitalization, Other)
  Sender: FDA-Public Use
  Company Number: US-ROCHE-801853

PATIENT
  Sex: Male
  Weight: 88.53 kg

DRUGS (3)
  1. ACCUTANE [Suspect]
     Indication: ACNE
     Route: 048
     Dates: start: 19960724, end: 19961124
  2. ACCUTANE [Suspect]
     Route: 048
     Dates: start: 19961203, end: 199701
  3. DEXEDRINE [Concomitant]

REACTIONS (9)
  - Crohn^s disease [Unknown]
  - Crohn^s disease [Unknown]
  - Inflammatory bowel disease [Unknown]
  - Depression [Unknown]
  - Injury [Unknown]
  - Anal abscess [Unknown]
  - Intestinal obstruction [Unknown]
  - Diverticulitis [Unknown]
  - Anal fistula [Unknown]
